FAERS Safety Report 14152395 (Version 1)
Quarter: 2017Q4

REPORT INFORMATION
  Report Type: Spontaneous
  Country: US (occurrence: None)
  Receive Date: 20171102
  Receipt Date: 20171102
  Transmission Date: 20180321
  Serious: Yes (Other)
  Sender: FDA-Public Use
  Company Number: None

PATIENT
  Age: 70 Year
  Sex: Female

DRUGS (6)
  1. LEVOTHRYOXINE 125MCG MYLAN [Suspect]
     Active Substance: LEVOTHYROXINE
     Indication: WRONG PATIENT RECEIVED MEDICATION
     Route: 048
     Dates: start: 20170630, end: 20171010
  2. LOVASTATIN. [Concomitant]
     Active Substance: LOVASTATIN
  3. CLOTRIMAZOLE 1% CREAM [Concomitant]
  4. FUROSEMIDE. [Concomitant]
     Active Substance: FUROSEMIDE
  5. LOSARTAN/HCTZ [Concomitant]
     Active Substance: HYDROCHLOROTHIAZIDE\LOSARTAN
  6. VENTOLIN [Concomitant]
     Active Substance: ALBUTEROL SULFATE

REACTIONS (4)
  - Weight increased [None]
  - Wrong patient received medication [None]
  - Wrong drug administered [None]
  - Pharyngeal oedema [None]

NARRATIVE: CASE EVENT DATE: 201708
